FAERS Safety Report 9297555 (Version 1)
Quarter: 2013Q2

REPORT INFORMATION
  Report Type: Spontaneous
  Country: US (occurrence: US)
  Receive Date: 20130520
  Receipt Date: 20130520
  Transmission Date: 20140414
  Serious: Yes (Other)
  Sender: FDA-Public Use
  Company Number: US-BAYER-2013-060328

PATIENT
  Age: 32 Year
  Sex: Female

DRUGS (1)
  1. YASMIN [Suspect]
     Route: 048

REACTIONS (6)
  - Anxiety [None]
  - Palpitations [None]
  - Sleep disorder [None]
  - Fear [None]
  - Depression [None]
  - Crying [None]
